FAERS Safety Report 24731896 (Version 1)
Quarter: 2024Q4

REPORT INFORMATION
  Report Type: Spontaneous
  Country: US (occurrence: US)
  Receive Date: 20241213
  Receipt Date: 20241213
  Transmission Date: 20250115
  Serious: No
  Sender: CALLIDITAS THERAPEUTICS AB
  Company Number: US-Calliditas-2024CAL02830

PATIENT
  Age: 56 Year
  Sex: Male

DRUGS (4)
  1. TARPEYO [Suspect]
     Active Substance: BUDESONIDE
     Indication: Chronic kidney disease
     Route: 048
     Dates: start: 20241203
  2. LOSARTAN [Concomitant]
     Active Substance: LOSARTAN
  3. LISINOPRIL [Concomitant]
     Active Substance: LISINOPRIL
  4. KERENDIA [Concomitant]
     Active Substance: FINERENONE

REACTIONS (2)
  - Rash pruritic [Not Recovered/Not Resolved]
  - Off label use [Unknown]
